FAERS Safety Report 8376013-4 (Version None)
Quarter: 2012Q2

REPORT INFORMATION
  Report Type: 
  Country: None (occurrence: None)
  Receive Date: 20120522
  Receipt Date: 20120516
  Transmission Date: 20120825
  Serious: Yes (Other)
  Sender: FDA-Public Use
  Company Number: PHHY2012BR042642

PATIENT
  Sex: Male

DRUGS (4)
  1. ONBREZ [Suspect]
     Dosage: 150 UG, UNK
  2. FLUTICASONE PROPIONATE/SALMETEROL [Concomitant]
  3. SPIRIVA [Concomitant]
  4. FLUTICASONE PROPIONATE/SALMETEROL [Concomitant]

REACTIONS (2)
  - PNEUMONIA [None]
  - NASOPHARYNGITIS [None]
